FAERS Safety Report 4364398-5 (Version None)
Quarter: 2004Q2

REPORT INFORMATION
  Report Type: 
  Country: None (occurrence: None)
  Receive Date: 20040521
  Receipt Date: 20040507
  Transmission Date: 20050107
  Serious: Yes (Hospitalization, Other)
  Sender: FDA-Public Use
  Company Number: 2004S1001344

PATIENT
  Age: 89 Year
  Sex: Male

DRUGS (8)
  1. NITROFURANTOIN [Suspect]
     Indication: PROPHYLAXIS
     Dosage: 100MG(ONE DOSE), ORAL
     Route: 048
     Dates: start: 20040503
  2. LEVOTHYROXINE (0.075MG QD) [Concomitant]
     Indication: URINARY TRACT INFECTION
  3. PREDNISONE (5MG QD) [Concomitant]
  4. TAMSULOSIN [Concomitant]
  5. ATENOLOL [Concomitant]
  6. DIPHENOXYLATE/ATROPINE SULFATE (PRN) [Concomitant]
  7. LISONPRIL (10MG QD) [Concomitant]
  8. ASPIRIN [Concomitant]

REACTIONS (8)
  - FAECAL INCONTINENCE [None]
  - FEELING ABNORMAL [None]
  - FLUID RETENTION [None]
  - MEDICATION ERROR [None]
  - PNEUMONIA [None]
  - SELF-MEDICATION [None]
  - STUPOR [None]
  - URINARY INCONTINENCE [None]
